FAERS Safety Report 6881103 (Version 2)
Quarter: 2020Q3

REPORT INFORMATION
  Report Type: Spontaneous
  Country: GB (occurrence: GB)
  Receive Date: 20090109
  Receipt Date: 20200715
  Transmission Date: 20201103
  Serious: Yes (Death, Other)
  Sender: FDA-Public Use
  Company Number: GXKR2008GB12260

PATIENT
  Age: 56 Year
  Sex: Female

DRUGS (11)
  1. AMOXICILLIN. [Suspect]
     Active Substance: AMOXICILLIN
     Indication: ENDOCARDITIS
     Dosage: HIGH DOSE
     Route: 065
  2. STEROIDS NOS [Concomitant]
     Active Substance: UNSPECIFIED INGREDIENT
     Indication: POLYMYALGIA RHEUMATICA
     Dosage: UNK
     Route: 065
  3. VANCOMYCIN [Suspect]
     Active Substance: VANCOMYCIN
  4. TYGACIL [Suspect]
     Active Substance: TIGECYCLINE
     Indication: BACTERAEMIA
     Dosage: STANDARD DOSE
     Route: 065
  5. TYGACIL [Suspect]
     Active Substance: TIGECYCLINE
     Indication: ENDOCARDITIS
  6. TYGACIL [Suspect]
     Active Substance: TIGECYCLINE
     Indication: INTERVERTEBRAL DISCITIS
  7. VANCOMYCIN [Suspect]
     Active Substance: VANCOMYCIN
     Indication: BACTERAEMIA
     Dosage: UNK
     Route: 065
  8. VANCOMYCIN [Suspect]
     Active Substance: VANCOMYCIN
     Indication: ENDOCARDITIS
  9. TYGACIL [Suspect]
     Active Substance: TIGECYCLINE
  10. TYGACIL [Suspect]
     Active Substance: TIGECYCLINE
     Indication: INTERVERTEBRAL DISCITIS
  11. LINEZOLID. [Concomitant]
     Active Substance: LINEZOLID
     Indication: PRODUCT USED FOR UNKNOWN INDICATION
     Dosage: UNK
     Route: 065

REACTIONS (8)
  - Renal impairment [Unknown]
  - Bacteraemia [Fatal]
  - Acute kidney injury [Unknown]
  - Off label use [Not Recovered/Not Resolved]
  - Clostridium difficile colitis [Unknown]
  - Cardiac failure congestive [Fatal]
  - Drug ineffective for unapproved indication [Not Recovered/Not Resolved]
  - Drug ineffective [Fatal]
